FAERS Safety Report 8083240-2 (Version None)
Quarter: 2012Q1

REPORT INFORMATION
  Report Type: 
  Country: None (occurrence: None)
  Receive Date: 20120127
  Receipt Date: 20110303
  Transmission Date: 20120608
  Serious: No
  Sender: FDA-Public Use
  Company Number: US-ABBOTT-11P-163-0709180-00

PATIENT
  Sex: Male
  Weight: 152.09 kg

DRUGS (9)
  1. SOTALOL HCL [Concomitant]
     Indication: PRODUCT USED FOR UNKNOWN INDICATION
  2. HUMIRA [Suspect]
     Dates: start: 20100301
  3. MULTI-VITAMIN [Concomitant]
     Indication: PRODUCT USED FOR UNKNOWN INDICATION
  4. FISH OIL [Concomitant]
     Indication: PRODUCT USED FOR UNKNOWN INDICATION
  5. HUMIRA [Suspect]
     Indication: COLITIS ULCERATIVE
     Dosage: 80 MG LOADING DOSE
     Dates: start: 20110301
  6. HUMIRA [Suspect]
     Indication: CROHN'S DISEASE
     Dosage: 160 MG LOADING DOSE
     Dates: start: 20110201, end: 20110201
  7. HUMIRA [Suspect]
     Dosage: 80MG DOSE ONCE
     Dates: start: 20110301, end: 20110301
  8. AMBIEN [Concomitant]
     Indication: PRODUCT USED FOR UNKNOWN INDICATION
  9. LISINOPRIL [Concomitant]
     Indication: BLOOD PRESSURE

REACTIONS (3)
  - DYSURIA [None]
  - URINARY TRACT INFECTION [None]
  - PYREXIA [None]
